FAERS Safety Report 22608801 (Version 1)
Quarter: 2023Q2

REPORT INFORMATION
  Report Type: Spontaneous
  Country: US (occurrence: US)
  Receive Date: 20230616
  Receipt Date: 20230616
  Transmission Date: 20230722
  Serious: Yes (Other)
  Sender: FDA-Public Use
  Company Number: US-009507513-2306USA005561

PATIENT
  Age: 56 Year
  Sex: Male

DRUGS (2)
  1. KEYTRUDA [Suspect]
     Active Substance: PEMBROLIZUMAB
     Indication: Cholangiocarcinoma
     Dosage: UNK, 20 DOSES WERE ADMINISTERED OVER 16 MONTHS
  2. GEMCITABINE CISPLATIN [Concomitant]
     Indication: Cholangiocarcinoma
     Dosage: UNK, 3 MONTHS OF THERAPY

REACTIONS (2)
  - Transplant rejection [Recovering/Resolving]
  - Product use in unapproved indication [Unknown]
